FAERS Safety Report 4342940-8 (Version None)
Quarter: 2004Q1

REPORT INFORMATION
  Report Type: 
  Country: None (occurrence: None)
  Receive Date: 20040325
  Receipt Date: 20040113
  Transmission Date: 20041129
  Serious: No
  Sender: FDA-Public Use
  Company Number: USA030227963

PATIENT
  Age: 49 Year
  Sex: Female

DRUGS (9)
  1. FORTEO [Suspect]
     Dosage: 20 UG/DAY
     Dates: start: 20030101
  2. VIOXX [Concomitant]
  3. PREDNISONE [Concomitant]
  4. AMITRIPTYLINE HCL [Concomitant]
  5. ZOLOFT [Concomitant]
  6. MS CONTIN [Concomitant]
  7. PROTONIX [Concomitant]
  8. MORPHINE SULFATE [Concomitant]
  9. MVI (MVI) [Concomitant]

REACTIONS (4)
  - ALANINE AMINOTRANSFERASE INCREASED [None]
  - ASPARTATE AMINOTRANSFERASE INCREASED [None]
  - BLOOD ALKALINE PHOSPHATASE INCREASED [None]
  - INJECTION SITE RASH [None]
